FAERS Safety Report 5778714-0 (Version None)
Quarter: 2008Q2

REPORT INFORMATION
  Report Type: 
  Country: None (occurrence: None)
  Receive Date: 20080618
  Receipt Date: 20080618
  Transmission Date: 20081010
  Serious: Yes (Hospitalization, Disabling)
  Sender: FDA-Public Use
  Company Number: None

PATIENT
  Age: 10 Year
  Sex: Female

DRUGS (1)
  1. EPIPEN JR. [Suspect]
     Indication: ACCIDENT
     Dosage: 1 TIME IM
     Route: 030
     Dates: start: 20080530, end: 20080530

REACTIONS (4)
  - ACCIDENTAL NEEDLE STICK [None]
  - DEVICE BREAKAGE [None]
  - MOVEMENT DISORDER [None]
  - PAIN IN EXTREMITY [None]
